FAERS Safety Report 16036864 (Version 1)
Quarter: 2019Q1

REPORT INFORMATION
  Report Type: Spontaneous
  Country: GB (occurrence: GB)
  Receive Date: 20190305
  Receipt Date: 20190305
  Transmission Date: 20190418
  Serious: Yes (Other)
  Sender: FDA-Public Use
  Company Number: GB-PFIZER INC-2019088813

PATIENT
  Age: 47 Year
  Sex: Female

DRUGS (5)
  1. DOXORUBICIN HCL [Suspect]
     Active Substance: DOXORUBICIN HYDROCHLORIDE
     Dosage: UNK (6 CYCLES)
  2. BLEOMYCIN HYDROCHLORIDE [Suspect]
     Active Substance: BLEOMYCIN HYDROCHLORIDE
     Indication: HODGKIN^S DISEASE NODULAR SCLEROSIS
     Dosage: 5 MG, UNK (BLEO FOR INJ 5 MG 6 CYCLES)
  3. VINBLASTINE [Suspect]
     Active Substance: VINBLASTINE
     Indication: HODGKIN^S DISEASE NODULAR SCLEROSIS
     Dosage: 10 MG, UNK (EXAL FOR INJ. 10MG;6 CYCLES)
  4. VINBLASTINE [Suspect]
     Active Substance: VINBLASTINE
     Dosage: 10 MG, UNK (EXAL FOR INJ. 10MG;6 CYCLES, REDUCED DOSE (50 PERCENT))
  5. DACARBAZINE. [Suspect]
     Active Substance: DACARBAZINE
     Indication: HODGKIN^S DISEASE NODULAR SCLEROSIS
     Dosage: UNK (6 CYCLES)

REACTIONS (1)
  - Pulmonary toxicity [Recovered/Resolved]
